FAERS Safety Report 5497588-9 (Version None)
Quarter: 2007Q4

REPORT INFORMATION
  Report Type: 
  Country: None (occurrence: None)
  Receive Date: 20071025
  Receipt Date: 20061212
  Transmission Date: 20080405
  Serious: No
  Sender: FDA-Public Use
  Company Number: A0631336A

PATIENT
  Age: 12 Year
  Sex: Male

DRUGS (2)
  1. ADVAIR DISKUS 100/50 [Suspect]
     Indication: ASTHMA
     Route: 055
  2. ALLEGRA [Concomitant]

REACTIONS (2)
  - PAIN IN EXTREMITY [None]
  - SCROTAL PAIN [None]
